FAERS Safety Report 7803879-6 (Version None)
Quarter: 2011Q4

REPORT INFORMATION
  Report Type: 
  Country: None (occurrence: None)
  Receive Date: 20111010
  Receipt Date: 20111003
  Transmission Date: 20120403
  Serious: Yes (Hospitalization, Other)
  Sender: FDA-Public Use
  Company Number: AT-PFIZER INC-2011235925

PATIENT
  Age: 69 Year
  Sex: Female

DRUGS (8)
  1. OXAZEPAM [Suspect]
     Dosage: 45-75 MG DAILY
     Dates: start: 20110114
  2. TRAZODONE HCL [Suspect]
     Dosage: 100-150 MG DAILY
     Dates: start: 20110114, end: 20110216
  3. LYRICA [Suspect]
     Dosage: UNK
  4. MIRTAZAPINE [Suspect]
     Dosage: 30 MG, UNK
     Dates: start: 20110217, end: 20110223
  5. MIRTAZAPINE [Suspect]
     Dosage: 15MG DAILY
     Dates: start: 20110215, end: 20110216
  6. TENORMIN [Concomitant]
     Dosage: 50 MG DAILY
     Dates: start: 20080101
  7. ESCITALOPRAM [Suspect]
     Dosage: 10-20 MG DAILY
     Dates: start: 20110114, end: 20110218
  8. PANTOPRAZOLE SODIUM [Concomitant]
     Dosage: 40 MG, UNK
     Dates: start: 20110114

REACTIONS (4)
  - DEPRESSION [None]
  - FALL [None]
  - DELIRIUM [None]
  - GENERALISED ANXIETY DISORDER [None]
